FAERS Safety Report 22988683 (Version 2)
Quarter: 2023Q4

REPORT INFORMATION
  Report Type: Spontaneous
  Country: US (occurrence: US)
  Receive Date: 20230926
  Receipt Date: 20231017
  Transmission Date: 20240109
  Serious: No
  Sender: FDA-Public Use
  Company Number: US-BIOGEN-2023BI01226642

PATIENT
  Age: 78 Year
  Sex: Male
  Weight: 85 kg

DRUGS (12)
  1. ADUHELM [Suspect]
     Active Substance: ADUCANUMAB-AVWA
     Indication: Dementia Alzheimer^s type
     Route: 050
     Dates: start: 20220419
  2. ADUHELM [Suspect]
     Active Substance: ADUCANUMAB-AVWA
     Dosage: AS REPORTED BY THE AUTHORS
     Route: 050
  3. ADUHELM [Suspect]
     Active Substance: ADUCANUMAB-AVWA
     Route: 050
     Dates: start: 20220517
  4. ADUHELM [Suspect]
     Active Substance: ADUCANUMAB-AVWA
     Route: 050
     Dates: start: 20220803
  5. ADUHELM [Suspect]
     Active Substance: ADUCANUMAB-AVWA
     Route: 050
     Dates: start: 20220831
  6. ADUHELM [Suspect]
     Active Substance: ADUCANUMAB-AVWA
     Route: 050
     Dates: start: 20230324
  7. ADUHELM [Suspect]
     Active Substance: ADUCANUMAB-AVWA
     Route: 050
     Dates: start: 20230417
  8. ADUHELM [Suspect]
     Active Substance: ADUCANUMAB-AVWA
     Dosage: MOST RECENT ADMINISTRATION
     Route: 050
     Dates: start: 20220831
  9. MEMANTINE [Concomitant]
     Active Substance: MEMANTINE
     Indication: Dementia Alzheimer^s type
     Route: 050
  10. RIVASTIGMINE [Concomitant]
     Active Substance: RIVASTIGMINE
     Indication: Dementia Alzheimer^s type
     Route: 050
  11. TRAMIPROSATE [Concomitant]
     Active Substance: TRAMIPROSATE
     Indication: Dementia Alzheimer^s type
     Route: 050
  12. ASPIRIN [Concomitant]
     Active Substance: ASPIRIN
     Indication: Product used for unknown indication
     Route: 050

REACTIONS (2)
  - Amyloid related imaging abnormality-microhaemorrhages and haemosiderin deposits [Unknown]
  - Off label use [Not Recovered/Not Resolved]

NARRATIVE: CASE EVENT DATE: 20220913
